FAERS Safety Report 6084325-2 (Version None)
Quarter: 2009Q1

REPORT INFORMATION
  Report Type: 
  Country: None (occurrence: None)
  Receive Date: 20090219
  Receipt Date: 20090209
  Transmission Date: 20090719
  Serious: Yes (Other)
  Sender: FDA-Public Use
  Company Number: JP-GILEAD-E2B_00000287

PATIENT
  Age: 17 Year
  Sex: Male

DRUGS (2)
  1. HEPSERA [Suspect]
     Indication: DRUG USE FOR UNKNOWN INDICATION
     Dosage: 10MG PER DAY
     Route: 048
     Dates: start: 20090116, end: 20090207
  2. BARACLUDE [Concomitant]
     Dosage: .5MG PER DAY
     Route: 048
     Dates: start: 20081201

REACTIONS (2)
  - PYREXIA [None]
  - RASH [None]
